FAERS Safety Report 20753223 (Version 1)
Quarter: 2022Q2

REPORT INFORMATION
  Report Type: Spontaneous
  Country: US (occurrence: None)
  Receive Date: 20220426
  Receipt Date: 20220426
  Transmission Date: 20220721
  Serious: No
  Sender: FDA-Public Use
  Company Number: US-ROCHE-2795429

PATIENT
  Sex: Male

DRUGS (1)
  1. ESBRIET [Suspect]
     Active Substance: PIRFENIDONE
     Indication: Chronic respiratory failure
     Dosage: 1 TABLET THRICE DAILY, 2 TABLETS THRICE DAILY FOR 1 WEEK, 3 TABLETS THRICE DAILY WITH MEALS
     Route: 048

REACTIONS (3)
  - Dyspnoea exertional [Unknown]
  - Productive cough [Unknown]
  - Wheezing [Unknown]
